FAERS Safety Report 24544168 (Version 1)
Quarter: 2024Q4

REPORT INFORMATION
  Report Type: Spontaneous
  Country: TW (occurrence: TW)
  Receive Date: 20241024
  Receipt Date: 20241024
  Transmission Date: 20250114
  Serious: Yes (Hospitalization)
  Sender: MYLAN
  Company Number: TW-MYLANLABS-2024M1096394

PATIENT
  Age: 68 Year
  Sex: Female

DRUGS (9)
  1. ALPRAZOLAM [Suspect]
     Active Substance: ALPRAZOLAM
     Indication: Anxiety
     Dosage: UNK
     Route: 065
     Dates: start: 202208
  2. MODERNA COVID-19 VACCINE [Suspect]
     Active Substance: ELASOMERAN
     Indication: COVID-19 immunisation
     Dosage: UNK
     Route: 065
  3. MIRTAZAPINE [Suspect]
     Active Substance: MIRTAZAPINE
     Indication: Depression
     Dosage: 30 MILLIGRAM
     Route: 065
     Dates: start: 202208
  4. BUPROPION [Suspect]
     Active Substance: BUPROPION
     Indication: Depression
     Dosage: 150 MILLIGRAM
     Route: 065
     Dates: start: 202208
  5. QUETIAPINE [Suspect]
     Active Substance: QUETIAPINE
     Indication: Depression
     Dosage: 100 MILLIGRAM
     Route: 065
     Dates: start: 202208
  6. ESTAZOLAM [Suspect]
     Active Substance: ESTAZOLAM
     Indication: Sleep disorder
     Dosage: 1 MILLIGRAM
     Route: 065
     Dates: start: 202208
  7. VALDOXAN [Suspect]
     Active Substance: AGOMELATINE
     Indication: Depression
     Dosage: 25 MILLIGRAM
     Route: 065
     Dates: start: 202209
  8. ZOLPIDEM [Suspect]
     Active Substance: ZOLPIDEM TARTRATE
     Indication: Sleep disorder
     Dosage: 6.25 MILLIGRAM
     Route: 065
     Dates: start: 202209
  9. ARIPIPRAZOLE [Suspect]
     Active Substance: ARIPIPRAZOLE
     Indication: Psychomotor retardation
     Dosage: 2.5 MILLIGRAM
     Route: 065
     Dates: start: 202209, end: 202211

REACTIONS (1)
  - Drug ineffective [Unknown]
